FAERS Safety Report 15214241 (Version 2)
Quarter: 2018Q3

REPORT INFORMATION
  Report Type: Spontaneous
  Country: BE (occurrence: BE)
  Receive Date: 20180730
  Receipt Date: 20180807
  Transmission Date: 20181010
  Serious: Yes (Other)
  Sender: FDA-Public Use
  Company Number: PHHY2018BE055344

PATIENT
  Sex: Male

DRUGS (2)
  1. MOMETASONE SANDOZ [Suspect]
     Active Substance: MOMETASONE
     Indication: EAR INFECTION
  2. MOMETASONE SANDOZ [Suspect]
     Active Substance: MOMETASONE
     Indication: NASAL CONGESTION
     Dosage: 1 DF, UNK
     Route: 065
     Dates: start: 20180508, end: 20180714

REACTIONS (2)
  - Intraocular pressure increased [Unknown]
  - Blindness [Recovering/Resolving]
